FAERS Safety Report 23686957 (Version 4)
Quarter: 2024Q3

REPORT INFORMATION
  Report Type: Spontaneous
  Country: US (occurrence: US)
  Receive Date: 20240329
  Receipt Date: 20240704
  Transmission Date: 20241016
  Serious: No
  Sender: BIOGEN
  Company Number: US-BIOGEN-2024BI01257214

PATIENT
  Sex: Female

DRUGS (1)
  1. TYSABRI [Suspect]
     Active Substance: NATALIZUMAB
     Indication: Multiple sclerosis
     Route: 050
     Dates: start: 20110812

REACTIONS (4)
  - Inflammation [Unknown]
  - Malaise [Unknown]
  - Stress [Unknown]
  - Multiple sclerosis pseudo relapse [Recovered/Resolved]
